FAERS Safety Report 6001669-0 (Version None)
Quarter: 2008Q4

REPORT INFORMATION
  Report Type: 
  Country: None (occurrence: None)
  Receive Date: 20081215
  Receipt Date: 20081211
  Transmission Date: 20090506
  Serious: Yes (Hospitalization)
  Sender: FDA-Public Use
  Company Number: US-ROXANE LABORATORIES, INC.-2008-RO-00405RO

PATIENT
  Age: 32 Year
  Sex: Male

DRUGS (8)
  1. AZATHIOPRINE [Suspect]
     Indication: CROHN'S DISEASE
     Dosage: 100MG
  2. AZATHIOPRINE [Suspect]
  3. PREDNISONE TAB [Suspect]
     Indication: CROHN'S DISEASE
     Dosage: 10MG
  4. PREDNISONE TAB [Suspect]
     Dosage: 30MG
  5. PREDNISONE TAB [Suspect]
     Dosage: 10MG
  6. CEFAZOLIN SODIUM [Concomitant]
     Indication: CELLULITIS
     Route: 042
  7. CEFEPIME HYDROCHLORIDE [Concomitant]
     Indication: CELLULITIS
     Route: 042
  8. VANCOMYCIN [Concomitant]
     Indication: CELLULITIS
     Route: 042

REACTIONS (2)
  - ACUTE FEBRILE NEUTROPHILIC DERMATOSIS [None]
  - CELLULITIS [None]
